FAERS Safety Report 6301351-6 (Version None)
Quarter: 2009Q3

REPORT INFORMATION
  Report Type: 
  Country: None (occurrence: None)
  Receive Date: 20090807
  Receipt Date: 20090728
  Transmission Date: 20100115
  Serious: Yes (Death)
  Sender: FDA-Public Use
  Company Number: PH-PFIZER INC-2008080413

PATIENT
  Age: 79 Year

DRUGS (1)
  1. CEFOPERAZONE SODIUM, SULBACTAM SODIUM [Suspect]
     Indication: LOWER RESPIRATORY TRACT INFECTION
     Dosage: 1.5 G, 3X/DAY
     Dates: start: 20080810, end: 20080811

REACTIONS (2)
  - ACUTE RESPIRATORY FAILURE [None]
  - PNEUMONIA ASPIRATION [None]
